FAERS Safety Report 11516659 (Version 1)
Quarter: 2015Q3

REPORT INFORMATION
  Report Type: Spontaneous
  Country: US (occurrence: None)
  Receive Date: 20150916
  Receipt Date: 20150916
  Transmission Date: 20151125
  Serious: Yes (Disabling)
  Sender: FDA-Public Use
  Company Number: None

PATIENT
  Age: 44 Year
  Sex: Female
  Weight: 58.5 kg

DRUGS (1)
  1. PAZOPANIB 200MG [Suspect]
     Active Substance: PAZOPANIB
     Indication: RENAL CELL CARCINOMA
     Dosage: 3 PILLS QD ORAL
     Route: 048

REACTIONS (2)
  - Anaemia [None]
  - Malabsorption [None]

NARRATIVE: CASE EVENT DATE: 20150615
